FAERS Safety Report 9158787 (Version 1)
Quarter: 2013Q1

REPORT INFORMATION
  Report Type: Spontaneous
  Country: US (occurrence: US)
  Receive Date: 20130225
  Receipt Date: 20130225
  Transmission Date: 20140127
  Serious: Yes (Hospitalization)
  Sender: FDA-Public Use
  Company Number: US-RB-046749-12

PATIENT
  Age: 45 Year
  Sex: Female

DRUGS (6)
  1. SUBOXONE FILM [Suspect]
     Dosage: SUBOXONE FILM
     Route: 060
     Dates: start: 2009, end: 20121003
  2. SUBOXONE FILM [Suspect]
     Indication: PAIN
     Dosage: SUBOXONE FILM
     Route: 060
     Dates: start: 20121004, end: 20121029
  3. SUBOXONE FILM [Suspect]
     Indication: DRUG DEPENDENCE
     Dosage: SUBOXONE FILM
     Route: 060
     Dates: start: 20121030
  4. ZOLOFT [Concomitant]
     Indication: ANXIETY
     Dosage: DOSING DETAILS UNKNOWN
     Route: 065
  5. NEURONTIN [Concomitant]
     Indication: NEUROPATHY PERIPHERAL
     Dosage: DOSING DETAILS UNKNOWN
     Route: 065
  6. XANAX [Concomitant]
     Indication: ANXIETY
     Dosage: DOSING INFORMATION NOT PROVIDED
     Route: 065

REACTIONS (8)
  - Wrong technique in drug usage process [Recovered/Resolved]
  - Multiple fractures [Recovered/Resolved]
  - Facial bones fracture [Recovered/Resolved]
  - Rib fracture [Recovered/Resolved]
  - Road traffic accident [Recovered/Resolved]
  - Pain [Recovered/Resolved]
  - Intentional overdose [Recovered/Resolved]
  - Underdose [Recovered/Resolved]
